FAERS Safety Report 5116720-X (Version None)
Quarter: 2006Q3

REPORT INFORMATION
  Report Type: 
  Country: None (occurrence: None)
  Receive Date: 20060925
  Receipt Date: 20060912
  Transmission Date: 20061208
  Serious: Yes (Other)
  Sender: FDA-Public Use
  Company Number: 2006110896

PATIENT
  Age: 80 Year
  Sex: Male
  Weight: 68.9467 kg

DRUGS (7)
  1. ZYVOX [Suspect]
     Indication: STAPHYLOCOCCAL INFECTION
     Dosage: 1200 MG (600 MG, 2 IN 1 D)
     Dates: start: 20060830, end: 20060909
  2. ALL OTHER THERAPEUTIC PRODUCTS [Concomitant]
  3. PHENYTOIN [Concomitant]
  4. FUROSEMIDE [Concomitant]
  5. ALL OTHER THERAPEUTIC PRODUCTS [Concomitant]
  6. LEVOTHYROXINE SODIUM [Concomitant]
  7. ASPIRIN [Concomitant]

REACTIONS (4)
  - ANTICONVULSANT DRUG LEVEL INCREASED [None]
  - BLOOD THYROID STIMULATING HORMONE [None]
  - PLATELET COUNT DECREASED [None]
  - WOUND SECRETION [None]
